FAERS Safety Report 5168983-2 (Version None)
Quarter: 2006Q4

REPORT INFORMATION
  Report Type: 
  Country: None (occurrence: None)
  Receive Date: 20061201
  Receipt Date: 20061117
  Transmission Date: 20070319
  Serious: Yes (Hospitalization)
  Sender: FDA-Public Use
  Company Number: CED-AE-06-004

PATIENT
  Age: 42 Year
  Sex: Male

DRUGS (2)
  1. METHIMAZOLE [Suspect]
     Indication: HYPERTHYROIDISM
     Dosage: 30 MG Q6HR-IV
     Route: 042
  2. HYDROCORTISONE [Suspect]
     Indication: HYPERTHYROIDISM
     Dosage: 100 MG Q8HRS-IV
     Route: 042

REACTIONS (9)
  - ALANINE AMINOTRANSFERASE INCREASED [None]
  - ASPARTATE AMINOTRANSFERASE INCREASED [None]
  - BASEDOW'S DISEASE [None]
  - DRUG DOSE OMISSION [None]
  - GASTROINTESTINAL HAEMORRHAGE [None]
  - HYPERBILIRUBINAEMIA [None]
  - MEDICATION ERROR [None]
  - POST PROCEDURAL COMPLICATION [None]
  - TRANSAMINASES INCREASED [None]
